FAERS Safety Report 14653277 (Version 1)
Quarter: 2018Q1

REPORT INFORMATION
  Report Type: Report from Study
  Country: CA (occurrence: CA)
  Receive Date: 20180319
  Receipt Date: 20180319
  Transmission Date: 20180509
  Serious: Yes (Other)
  Sender: FDA-Public Use
  Company Number: CA-ROCHE-2060667

PATIENT
  Sex: Female
  Weight: 45.4 kg

DRUGS (6)
  1. AVASTIN [Suspect]
     Active Substance: BEVACIZUMAB
     Indication: ASTROCYTOMA
     Route: 042
     Dates: start: 20161219
  2. LOMUSTINE. [Concomitant]
     Active Substance: LOMUSTINE
  3. LACTAID (CANADA) [Concomitant]
  4. KEPPRA [Concomitant]
     Active Substance: LEVETIRACETAM
  5. DECADRON [Concomitant]
     Active Substance: DEXAMETHASONE
  6. AVASTIN [Suspect]
     Active Substance: BEVACIZUMAB
     Route: 042

REACTIONS (3)
  - Weight decreased [Unknown]
  - Myalgia [Not Recovered/Not Resolved]
  - Muscle atrophy [Unknown]
